FAERS Safety Report 5869797-8 (Version None)
Quarter: 2008Q3

REPORT INFORMATION
  Report Type: 
  Country: None (occurrence: None)
  Receive Date: 20080828
  Receipt Date: 20070904
  Transmission Date: 20090109
  Serious: Yes (Hospitalization)
  Sender: FDA-Public Use
  Company Number: 2007-00812FE

PATIENT
  Sex: Female

DRUGS (1)
  1. MENOPUR [Suspect]
     Indication: INFERTILITY

REACTIONS (1)
  - OVARIAN HYPERSTIMULATION SYNDROME [None]
